FAERS Safety Report 13150216 (Version 1)
Quarter: 2017Q1

REPORT INFORMATION
  Report Type: Report from Study
  Country: US (occurrence: US)
  Receive Date: 20170124
  Receipt Date: 20170124
  Transmission Date: 20170428
  Serious: No
  Sender: FDA-Public Use
  Company Number: US-AMGEN-USASL2017004419

PATIENT
  Age: 35 Year
  Sex: Female

DRUGS (2)
  1. REPATHA [Suspect]
     Active Substance: EVOLOCUMAB
     Indication: BLOOD TRIGLYCERIDES ABNORMAL
     Dosage: 420 MG, QMO
     Route: 065
     Dates: start: 201610
  2. REPATHA [Suspect]
     Active Substance: EVOLOCUMAB

REACTIONS (2)
  - Underdose [Unknown]
  - Malaise [Unknown]

NARRATIVE: CASE EVENT DATE: 20161207
